FAERS Safety Report 8731872 (Version 4)
Quarter: 2013Q2

REPORT INFORMATION
  Report Type: Spontaneous
  Country: US (occurrence: US)
  Receive Date: 20120820
  Receipt Date: 20130508
  Transmission Date: 20140414
  Serious: Yes (Other)
  Sender: FDA-Public Use
  Company Number: US-BAYER-2012-085066

PATIENT
  Age: 45 Year
  Sex: Female
  Weight: 124.72 kg

DRUGS (5)
  1. MIRENA [Suspect]
     Indication: CONTRACEPTION
     Dosage: 20 MCG/24HR, CONT
     Route: 015
     Dates: start: 20120511, end: 20120517
  2. MIRENA [Suspect]
     Indication: MENORRHAGIA
  3. COUMADIN [Concomitant]
  4. METOPROLOL [Concomitant]
  5. AMBIEN [Concomitant]

REACTIONS (4)
  - Procedural pain [None]
  - Genital haemorrhage [None]
  - Device expulsion [None]
  - Device breakage [Recovering/Resolving]
